FAERS Safety Report 8536236-8 (Version None)
Quarter: 2012Q3

REPORT INFORMATION
  Report Type: 
  Country: None (occurrence: None)
  Receive Date: 20120725
  Receipt Date: 20120719
  Transmission Date: 20120928
  Serious: Yes (Other)
  Sender: FDA-Public Use
  Company Number: US-PFIZER INC-2012175404

PATIENT
  Sex: Male

DRUGS (1)
  1. VIAGRA [Suspect]
     Indication: CARDIAC DISORDER

REACTIONS (3)
  - THERAPEUTIC RESPONSE UNEXPECTED [None]
  - CARDIOVASCULAR DISORDER [None]
  - CHEST PAIN [None]
